FAERS Safety Report 26038963 (Version 1)
Quarter: 2025Q4

REPORT INFORMATION
  Report Type: Spontaneous
  Country: CN (occurrence: CN)
  Receive Date: 20251113
  Receipt Date: 20251113
  Transmission Date: 20260117
  Serious: Yes (Other)
  Sender: ACCORD
  Company Number: None

PATIENT
  Age: 38 Year
  Sex: Male
  Weight: 68 kg

DRUGS (4)
  1. TRASTUZUMAB [Suspect]
     Active Substance: TRASTUZUMAB
     Indication: Product used for unknown indication
     Dosage: 410 MILLIGRAM, QD, STRENGTH: 150 MG, IV DRIP
     Route: 042
     Dates: start: 20250929, end: 20250929
  2. CISPLATIN [Suspect]
     Active Substance: CISPLATIN
     Indication: Product used for unknown indication
     Dosage: 30 MILLIGRAM, QD, IV DRIP
     Route: 042
     Dates: start: 20250929, end: 20251001
  3. FLUOROURACIL [Suspect]
     Active Substance: FLUOROURACIL
     Indication: Product used for unknown indication
     Dosage: 4 GRAM, QD, IV DRIP
     Route: 042
     Dates: start: 20250929, end: 20250929
  4. SINTILIMAB [Suspect]
     Active Substance: SINTILIMAB
     Indication: Product used for unknown indication
     Dosage: 200 MILLIGRAM, QD, IV DRIP
     Route: 042
     Dates: start: 20250929, end: 20250929

REACTIONS (1)
  - Myelosuppression [Recovering/Resolving]

NARRATIVE: CASE EVENT DATE: 20251021
